FAERS Safety Report 5341926-4 (Version None)
Quarter: 2007Q2

REPORT INFORMATION
  Report Type: 
  Country: None (occurrence: None)
  Receive Date: 20070601
  Receipt Date: 20070521
  Transmission Date: 20071010
  Serious: Yes (Hospitalization, Disabling, Other)
  Sender: FDA-Public Use
  Company Number: US-ROCHE-473702

PATIENT
  Age: 21 Year
  Sex: Female

DRUGS (2)
  1. ACCUTANE [Suspect]
     Route: 048
     Dates: start: 19971001, end: 19980201
  2. ORAL CONTRACEPTIVE NOS [Concomitant]

REACTIONS (12)
  - ABDOMINAL PAIN [None]
  - COLITIS [None]
  - COLITIS ULCERATIVE [None]
  - CROHN'S DISEASE [None]
  - DIARRHOEA [None]
  - INFLAMMATORY BOWEL DISEASE [None]
  - INTESTINAL HAEMORRHAGE [None]
  - INTESTINAL STENOSIS [None]
  - IRRITABLE BOWEL SYNDROME [None]
  - OESOPHAGEAL ULCER [None]
  - RECTAL HAEMORRHAGE [None]
  - WEIGHT DECREASED [None]
